FAERS Safety Report 9457509 (Version 1)
Quarter: 2013Q3

REPORT INFORMATION
  Report Type: Spontaneous
  Country: HR (occurrence: None)
  Receive Date: 20130812
  Receipt Date: 20130812
  Transmission Date: 20140515
  Serious: Yes (Hospitalization)
  Sender: FDA-Public Use
  Company Number: AG-2012-1608

PATIENT
  Age: 76 Year
  Sex: Male

DRUGS (2)
  1. CHLORAMBUCIL [Suspect]
     Indication: CHRONIC LYMPHOCYTIC LEUKAEMIA
     Dosage: NOT OTHERWISE SPECIFIED
     Route: 042
  2. RITUXIMAB [Concomitant]

REACTIONS (2)
  - Thrombocytopenia [None]
  - Haematuria [None]
